FAERS Safety Report 5399798-8 (Version None)
Quarter: 2007Q3

REPORT INFORMATION
  Report Type: 
  Country: None (occurrence: None)
  Receive Date: 20070730
  Receipt Date: 20070718
  Transmission Date: 20080115
  Serious: Yes (Hospitalization)
  Sender: FDA-Public Use
  Company Number: US-JNJFOC-20070704211

PATIENT
  Sex: Male
  Weight: 73 kg

DRUGS (2)
  1. INFLIXIMAB [Suspect]
     Indication: INFLAMMATION
     Route: 042
  2. PREDNISONE [Concomitant]

REACTIONS (1)
  - COLECTOMY [None]
